FAERS Safety Report 5895162-3 (Version None)
Quarter: 2008Q3

REPORT INFORMATION
  Report Type: 
  Country: None (occurrence: None)
  Receive Date: 20080924
  Receipt Date: 20080911
  Transmission Date: 20090109
  Serious: Yes (Other)
  Sender: FDA-Public Use
  Company Number: US-PFIZER INC-2008077822

PATIENT
  Sex: Female

DRUGS (7)
  1. LYRICA [Suspect]
     Indication: MUSCLE SPASMS
  2. SERTRALINE [Concomitant]
  3. OXYCODONE HCL [Concomitant]
     Indication: PAIN
  4. EXCEDRIN (MIGRAINE) [Concomitant]
     Indication: MIGRAINE
  5. SAFAPRYN [Concomitant]
     Indication: MIGRAINE
  6. EXCEDRIN (MIGRAINE) [Concomitant]
  7. ALL OTHER THERAPEUTIC PRODUCTS [Concomitant]

REACTIONS (1)
  - INCOHERENT [None]
